FAERS Safety Report 6323345-7 (Version None)
Quarter: 2009Q3

REPORT INFORMATION
  Report Type: 
  Country: None (occurrence: None)
  Receive Date: 20090824
  Receipt Date: 20090408
  Transmission Date: 20100115
  Serious: No
  Sender: FDA-Public Use
  Company Number: US-ABBOTT-09P-163-0567363-00

PATIENT
  Sex: Female
  Weight: 106.69 kg

DRUGS (8)
  1. NIASPAN [Suspect]
     Indication: BLOOD CHOLESTEROL
     Route: 048
     Dates: start: 20090407, end: 20090408
  2. DIOVAN [Concomitant]
     Indication: BLOOD PRESSURE
     Route: 048
  3. BYETTA [Concomitant]
     Indication: DIABETES MELLITUS
     Route: 058
  4. METFORMIN HCL [Concomitant]
     Indication: DIABETES MELLITUS
     Route: 048
  5. LOFIBRA [Concomitant]
     Indication: BLOOD CHOLESTEROL
     Route: 048
  6. OMEPRAZOLE [Concomitant]
     Indication: GASTROOESOPHAGEAL REFLUX DISEASE
     Route: 048
  7. ADVAIR HFA [Concomitant]
     Indication: ASTHMA
     Dosage: 250/50- ONE PUFF A DAY
     Route: 055
  8. ALBUTEROL [Concomitant]
     Indication: ASTHMA
     Dosage: RESCUE
     Route: 055

REACTIONS (5)
  - EYELID IRRITATION [None]
  - LIP SWELLING [None]
  - NASAL OEDEMA [None]
  - OEDEMA PERIPHERAL [None]
  - SWELLING FACE [None]
